FAERS Safety Report 4330601-0 (Version None)
Quarter: 2004Q2

REPORT INFORMATION
  Report Type: 
  Country: None (occurrence: None)
  Receive Date: 20040402
  Receipt Date: 20040210
  Transmission Date: 20050107
  Serious: Yes (Hospitalization)
  Sender: FDA-Public Use
  Company Number: FR-BRISTOL-MYERS SQUIBB COMPANY-12502019

PATIENT
  Age: 59 Year
  Sex: Male

DRUGS (3)
  1. AMIKLIN INJ [Suspect]
     Indication: BONE INFECTION
     Route: 042
     Dates: end: 20040107
  2. CLAFORAN [Suspect]
     Indication: BONE INFECTION
     Route: 042
     Dates: end: 20040107
  3. IMOVANE [Suspect]
     Indication: SLEEP DISORDER
     Route: 042
     Dates: end: 20040112

REACTIONS (1)
  - AGRANULOCYTOSIS [None]
